FAERS Safety Report 15193445 (Version 2)
Quarter: 2018Q3

REPORT INFORMATION
  Report Type: Spontaneous
  Country: DE (occurrence: DE)
  Receive Date: 20180725
  Receipt Date: 20180916
  Transmission Date: 20181010
  Serious: Yes (Life-Threatening, Hospitalization, Other)
  Sender: FDA-Public Use
  Company Number: DE-TORRENT-00009055

PATIENT
  Age: 23 Year
  Sex: Male

DRUGS (2)
  1. METHYLPHENIDATE HYDROCHLORIDE. [Suspect]
     Active Substance: METHYLPHENIDATE HYDROCHLORIDE
     Indication: ATTENTION DEFICIT/HYPERACTIVITY DISORDER
  2. QUETIAPIN [Interacting]
     Active Substance: QUETIAPINE
     Indication: AGITATION

REACTIONS (5)
  - Drug interaction [Recovered/Resolved]
  - Aspartate aminotransferase increased [Recovered/Resolved]
  - Alanine aminotransferase increased [Recovering/Resolving]
  - Off label use [Unknown]
  - Blood creatine phosphokinase increased [Recovered/Resolved]
